FAERS Safety Report 25452743 (Version 3)
Quarter: 2025Q2

REPORT INFORMATION
  Report Type: Spontaneous
  Country: US (occurrence: US)
  Receive Date: 20250618
  Receipt Date: 20250625
  Transmission Date: 20250717
  Serious: Yes (Hospitalization, Other)
  Sender: SANDOZ
  Company Number: US-SANDOZ-SDZ2025US041648

PATIENT
  Age: 78 Year
  Sex: Female
  Weight: 55.8 kg

DRUGS (98)
  1. AZITHROMYCIN [Suspect]
     Active Substance: AZITHROMYCIN
     Dosage: 500 MG, QD 25-MAY-2023
     Route: 048
  2. AZITHROMYCIN [Suspect]
     Active Substance: AZITHROMYCIN
     Dosage: 500 MG, QD 29-MAY-2025
     Route: 048
  3. AZITHROMYCIN [Suspect]
     Active Substance: AZITHROMYCIN
     Indication: Mycobacterium abscessus infection
     Dosage: 500 MG, QD ??-APR-2022
     Route: 048
  4. AZITHROMYCIN [Suspect]
     Active Substance: AZITHROMYCIN
     Route: 048
  5. AMIKACIN [Suspect]
     Active Substance: AMIKACIN
     Indication: Atypical mycobacterial infection
     Dosage: 500 MG, Q24H 27-MAY-2025
     Route: 055
     Dates: end: 20250528
  6. CLOFAZIMINE [Suspect]
     Active Substance: CLOFAZIMINE
     Indication: Hypertransaminasaemia
     Dosage: 50 MG, BID (50 MG CAPSULES) (2  CAPSULES) (100 MG, ONCE DAILY)   22-APR-2025
     Route: 048
  7. CLOFAZIMINE [Suspect]
     Active Substance: CLOFAZIMINE
     Indication: Mycobacterium abscessus infection
     Route: 048
  8. TIGECYCLINE [Suspect]
     Active Substance: TIGECYCLINE
     Indication: Mycobacterium abscessus infection
     Dosage: 50 MG, Q24H
     Route: 042
     Dates: end: 20250311
  9. TIGECYCLINE [Suspect]
     Active Substance: TIGECYCLINE
     Indication: Mycobacterial infection
     Dosage: 50 MG, Q24H (RESTARTED)
     Route: 042
  10. ALBUTEROL [Concomitant]
     Active Substance: ALBUTEROL
     Indication: Cough
     Dosage: 2.5 MG, PRN (RTQ4H) (NEB)
     Route: 065
  11. ALBUTEROL [Concomitant]
     Active Substance: ALBUTEROL
     Dosage: 2.5 MG, PRN (EVERY 6 HOURS) (STRENGTH:  0.083 PERCENT) (375 ML: 5 BOXES)
     Route: 055
  12. ALBUTEROL [Concomitant]
     Active Substance: ALBUTEROL
     Dosage: 2.5 MG, BID (STRENGTH: 0.083 PERCENT)  (225 ML: 3 BOXES) (GIVE NACL AFTER)
     Route: 055
  13. ALBUTEROL [Concomitant]
     Active Substance: ALBUTEROL
     Indication: Wheezing
     Dosage: 2.5 MG, RTBID (NEB)
     Route: 065
     Dates: start: 20250523
  14. ALVESCO [Concomitant]
     Active Substance: CICLESONIDE
     Indication: Product used for unknown indication
     Route: 055
  15. AMIKACIN SULFATE [Concomitant]
     Active Substance: AMIKACIN SULFATE
     Indication: Product used for unknown indication
     Dosage: 500 MG, QD (DAILY) (STRENGTH: 250 MG/ML)  (QTY: 60)
     Route: 065
  16. AMPICILLIN AND SULBACTAM [Concomitant]
     Active Substance: AMPICILLIN SODIUM\SULBACTAM SODIUM
     Indication: Product used for unknown indication
     Dosage: 3 G, Q6H
     Route: 042
  17. ASPIRIN [Concomitant]
     Active Substance: ASPIRIN
     Indication: Product used for unknown indication
     Dosage: 81 MG, QD
     Route: 048
     Dates: start: 20250325
  18. AUGMENTIN [Concomitant]
     Active Substance: AMOXICILLIN\CLAVULANATE POTASSIUM
     Indication: Chronic kidney disease
     Dosage: 875 MG, Q12H
     Route: 048
     Dates: start: 20250527
  19. AUGMENTIN [Concomitant]
     Active Substance: AMOXICILLIN\CLAVULANATE POTASSIUM
     Dosage: 875/125 MG, Q12H (QTY: 8) (NO REFILLS)
     Route: 023
  20. AUGMENTIN [Concomitant]
     Active Substance: AMOXICILLIN\CLAVULANATE POTASSIUM
     Route: 023
  21. BUPROPION [Concomitant]
     Active Substance: BUPROPION
     Dosage: 300 MG, QD
     Route: 048
  22. BUPROPION [Concomitant]
     Active Substance: BUPROPION
     Indication: Depression
     Route: 065
  23. CARVEDILOL [Concomitant]
     Active Substance: CARVEDILOL
     Indication: Hypertension
     Route: 065
  24. COREG [Concomitant]
     Active Substance: CARVEDILOL
     Dosage: 25 MG, PRN (BID)
     Route: 048
     Dates: start: 20241218
  25. COREG [Concomitant]
     Active Substance: CARVEDILOL
     Indication: Product used for unknown indication
     Dosage: 25 MG, BID
     Route: 048
     Dates: start: 20230625
  26. COZAAR [Concomitant]
     Active Substance: LOSARTAN POTASSIUM
     Indication: Product used for unknown indication
     Dosage: 50 MG, QD
     Route: 048
     Dates: start: 20250226
  27. MINERALS\VITAMINS [Concomitant]
     Active Substance: MINERALS\VITAMINS
     Indication: Product used for unknown indication
     Dosage: 1 DOSAGE FORM, QD (EACH)
     Route: 048
  28. DESYREL [Concomitant]
     Active Substance: TRAZODONE HYDROCHLORIDE
     Dosage: 100 MG, QHS (BEDTIME)
     Route: 048
     Dates: start: 20190627
  29. DESYREL [Concomitant]
     Active Substance: TRAZODONE HYDROCHLORIDE
     Dosage: 100 MG, QHS (BEDTIME)
     Route: 048
     Dates: start: 20241218
  30. DESYREL [Concomitant]
     Active Substance: TRAZODONE HYDROCHLORIDE
     Dosage: 100 MG, QHS (BEDTIME)
     Route: 048
     Dates: start: 20250523
  31. DESYREL [Concomitant]
     Active Substance: TRAZODONE HYDROCHLORIDE
     Indication: Product used for unknown indication
     Route: 048
  32. DEXTROSE [Concomitant]
     Active Substance: DEXTROSE MONOHYDRATE
     Indication: Chronic kidney disease
     Route: 042
  33. DITROPAN XL [Concomitant]
     Active Substance: OXYBUTYNIN CHLORIDE
     Indication: Product used for unknown indication
     Dosage: 10 MG, QHS
     Route: 048
  34. FLOMAX [Concomitant]
     Active Substance: TAMSULOSIN HYDROCHLORIDE
     Indication: Product used for unknown indication
     Dosage: 0.4 MG, QD
     Route: 048
     Dates: start: 20230712, end: 20250523
  35. GLUCAGEN [Concomitant]
     Active Substance: GLUCAGON HYDROCHLORIDE
     Indication: Product used for unknown indication
     Route: 030
  36. HEPARIN [Concomitant]
     Active Substance: HEPARIN SODIUM
     Indication: Deep vein thrombosis
     Route: 065
  37. HUMALOG [Concomitant]
     Active Substance: INSULIN LISPRO
     Dosage: UNK UNK, QHS (BEDTIME)
     Route: 058
  38. HUMALOG [Concomitant]
     Active Substance: INSULIN LISPRO
     Indication: Product used for unknown indication
     Route: 058
  39. IMODIUM [Concomitant]
     Active Substance: LOPERAMIDE HYDROCHLORIDE
     Indication: Product used for unknown indication
     Dosage: 2 MG, PRN (Q4H)
     Route: 048
     Dates: start: 20230712, end: 20250523
  40. IOPAMIDOL [Concomitant]
     Active Substance: IOPAMIDOL
     Indication: Product used for unknown indication
     Route: 042
  41. LACTOBACILLUS ACIDOPHILUS\LACTOBACILLUS BULGARICUS [Concomitant]
     Active Substance: LACTOBACILLUS ACIDOPHILUS\LACTOBACILLUS DELBRUECKII SUBSP. BULGARICUS
     Indication: Product used for unknown indication
     Dosage: 4 DF, QD
     Route: 048
     Dates: start: 20250527
  42. LACTOBACILLUS ACIDOPHILUS [Concomitant]
     Active Substance: LACTOBACILLUS ACIDOPHILUS
     Indication: Product used for unknown indication
     Dosage: 2 DOSAGE FORM, BID
     Route: 048
  43. LACTOBACILLUS ACIDOPHILUS [Concomitant]
     Active Substance: LACTOBACILLUS ACIDOPHILUS
     Dosage: 2 DOSAGE FORM, BID (QTY: 30) (1 EACH TAB
     Route: 048
  44. LIDOCAINE [Concomitant]
     Active Substance: LIDOCAINE
     Indication: Product used for unknown indication
     Dosage: 10 %, QD
     Route: 050
     Dates: start: 20250205
  45. LOVENOX [Concomitant]
     Active Substance: ENOXAPARIN SODIUM
     Dosage: 30 MG, Q12H
     Route: 058
     Dates: start: 20250523
  46. LOVENOX [Concomitant]
     Active Substance: ENOXAPARIN SODIUM
     Indication: Product used for unknown indication
     Dosage: 40 MG, Q24H, SUBQ
     Route: 065
  47. METRONIDAZOLE [Concomitant]
     Active Substance: METRONIDAZOLE
     Indication: Product used for unknown indication
     Dosage: 100 ML, Q12H
     Route: 042
  48. MIRALAX [Concomitant]
     Active Substance: POLYETHYLENE GLYCOL 3350
     Indication: Product used for unknown indication
     Dosage: 17 G, PRN (DAILY)
     Route: 048
     Dates: start: 20250523
  49. MIRALAX [Concomitant]
     Active Substance: POLYETHYLENE GLYCOL 3350
     Dosage: 17 G, PRN (DAILY)
     Route: 048
  50. MUCINEX [Concomitant]
     Active Substance: GUAIFENESIN
     Indication: Product used for unknown indication
     Dosage: 600 MG, Q12H
     Route: 048
     Dates: start: 20250205
  51. MUCUS [Concomitant]
     Active Substance: GUAIFENESIN
     Indication: Product used for unknown indication
     Dosage: 600 MG, QD
     Route: 048
     Dates: start: 20250523
  52. NEURONTIN [Concomitant]
     Active Substance: GABAPENTIN
     Indication: Product used for unknown indication
     Route: 048
     Dates: start: 20250220
  53. NITROGLYCERIN [Concomitant]
     Active Substance: NITROGLYCERIN
     Indication: Oesophageal spasm
     Route: 050
  54. NITROSTAT [Concomitant]
     Active Substance: NITROGLYCERIN
     Indication: Oesophageal spasm
     Dosage: 0.4 MG, PRN (DAILY AS NEEDED)
     Route: 048
     Dates: start: 20190627
  55. OCEAN SALINE NASAL SPRAY [Concomitant]
     Active Substance: SODIUM CHLORIDE
     Dosage: 1 DOSAGE FORM, PRN (Q2H) (SPRAY)
     Route: 045
  56. OCEAN SALINE NASAL SPRAY [Concomitant]
     Active Substance: SODIUM CHLORIDE
     Indication: Product used for unknown indication
     Dosage: 1 SPRAY, PRN PRN Q2H
     Route: 045
  57. OXYGEN [Concomitant]
     Active Substance: OXYGEN
     Indication: Product used for unknown indication
     Route: 065
  58. OZEMPIC [Concomitant]
     Active Substance: SEMAGLUTIDE
     Indication: Type 2 diabetes mellitus
     Route: 058
  59. PROTONIX [Concomitant]
     Active Substance: PANTOPRAZOLE SODIUM
     Indication: Product used for unknown indication
     Dosage: 40 MG, QD
     Route: 048
     Dates: start: 20190627
  60. PROVENTIL [Concomitant]
     Active Substance: ALBUTEROL
     Dosage: 2.5 MG, PRN (RTQ4H) (NEB)
     Route: 065
  61. PROVENTIL [Concomitant]
     Active Substance: ALBUTEROL
     Indication: Product used for unknown indication
     Route: 065
  62. REFRESH PLUS [Concomitant]
     Active Substance: CARBOXYMETHYLCELLULOSE SODIUM
     Dosage: 1 DOSAGE FORM, PRN (Q2H) (EACH EYE)
     Route: 065
  63. REFRESH PLUS [Concomitant]
     Active Substance: CARBOXYMETHYLCELLULOSE SODIUM
     Indication: Product used for unknown indication
     Dosage: UNK, Q2H 1 EA EACH EYE.
     Route: 047
  64. ROBAXIN [Concomitant]
     Active Substance: METHOCARBAMOL
     Indication: Muscle spasms
     Dosage: 750 MG, TID
     Route: 065
     Dates: start: 20250523, end: 20250523
  65. ROBAXIN [Concomitant]
     Active Substance: METHOCARBAMOL
     Indication: Pain
     Dosage: 750 MG, PRN (Q8H)
     Route: 065
     Dates: start: 20250323
  66. ROCEPHIN [Concomitant]
     Active Substance: CEFTRIAXONE SODIUM
     Indication: Product used for unknown indication
     Dosage: 2 G, Q24H
     Route: 042
     Dates: start: 20250523
  67. ROXICODONE [Concomitant]
     Active Substance: OXYCODONE HYDROCHLORIDE
     Indication: Product used for unknown indication
     Route: 048
     Dates: start: 20230712, end: 20250523
  68. SENOKOT [Concomitant]
     Active Substance: SENNOSIDES
     Route: 048
     Dates: start: 20250523
  69. SENOKOT [Concomitant]
     Active Substance: SENNOSIDES
     Route: 048
  70. SENOKOT [Concomitant]
     Active Substance: SENNOSIDES
     Indication: Chronic kidney disease
     Route: 048
  71. SODIUM CHLORIDE [Concomitant]
     Active Substance: SODIUM CHLORIDE
     Dosage: 1 DOSAGE FORM, PRN (1 SPRAY) (Q2H)
     Route: 045
  72. SODIUM CHLORIDE [Concomitant]
     Active Substance: SODIUM CHLORIDE
     Route: 042
  73. SODIUM CHLORIDE [Concomitant]
     Active Substance: SODIUM CHLORIDE
     Route: 065
  74. SODIUM CHLORIDE [Concomitant]
     Active Substance: SODIUM CHLORIDE
     Route: 065
  75. SODIUM CHLORIDE [Concomitant]
     Active Substance: SODIUM CHLORIDE
     Indication: Product used for unknown indication
     Route: 065
  76. SODIUM CHLORIDE [Concomitant]
     Active Substance: SODIUM CHLORIDE
     Route: 042
  77. SODIUM CHLORIDE [Concomitant]
     Active Substance: SODIUM CHLORIDE
     Dosage: 3 ML, BID RT (0.9 PERCENT VIAL)
     Route: 055
  78. SODIUM CHLORIDE [Concomitant]
     Active Substance: SODIUM CHLORIDE
     Dosage: 4 ML, BID (7 PERCENT VIAL, NEB) (AFTER  ALBUTEROL NEB)
     Route: 055
  79. SODIUM CHLORIDE [Concomitant]
     Active Substance: SODIUM CHLORIDE
     Route: 065
     Dates: start: 20250523
  80. TESSALON [Concomitant]
     Active Substance: BENZONATATE
     Dosage: 200 MG, Q4H
     Route: 048
  81. TESSALON [Concomitant]
     Active Substance: BENZONATATE
     Indication: Product used for unknown indication
     Dosage: 200 MG, Q8H
     Route: 048
  82. TRAZODONE [Concomitant]
     Active Substance: TRAZODONE HYDROCHLORIDE
     Indication: Depression
     Route: 065
  83. TUMS [Concomitant]
     Active Substance: CALCIUM CARBONATE
     Indication: Product used for unknown indication
     Route: 048
  84. TUMS [Concomitant]
     Active Substance: CALCIUM CARBONATE
     Dosage: 1000 MG, Q8H
     Route: 048
  85. TYLENOL [Concomitant]
     Active Substance: ACETAMINOPHEN
     Dosage: 650 MG, PRN (Q4H)
     Route: 048
     Dates: start: 20250523
  86. TYLENOL [Concomitant]
     Active Substance: ACETAMINOPHEN
     Dosage: 650 MG, PRN (Q4H)
     Route: 048
  87. TYLENOL [Concomitant]
     Active Substance: ACETAMINOPHEN
     Indication: Product used for unknown indication
     Dosage: 650 MG, Q4H,PRN PRN
     Route: 048
     Dates: start: 20230712
  88. TYLENOL [Concomitant]
     Active Substance: ACETAMINOPHEN
     Dosage: 650 MG, Q8H (QTY: 30)
     Route: 048
  89. VANCOMYCIN HYDROCHLORIDE [Concomitant]
     Active Substance: VANCOMYCIN HYDROCHLORIDE
     Indication: Product used for unknown indication
     Route: 042
     Dates: start: 20250523
  90. VENTOLIN [Concomitant]
     Active Substance: ALBUTEROL SULFATE
     Indication: Product used for unknown indication
     Dosage: 2.5 MG, RTBID NEB
     Route: 065
  91. VENTOLIN [Concomitant]
     Active Substance: ALBUTEROL SULFATE
     Dosage: 2.5 MG, RTBID (NEB)
     Route: 065
  92. VENTOLIN HFA [Concomitant]
     Active Substance: ALBUTEROL SULFATE
     Indication: Product used for unknown indication
     Route: 055
  93. WELLBUTRIN XL [Concomitant]
     Active Substance: BUPROPION HYDROCHLORIDE
     Dosage: 300 MG, QHS (BEDTIME)
     Route: 048
     Dates: start: 20241218
  94. WELLBUTRIN XL [Concomitant]
     Active Substance: BUPROPION HYDROCHLORIDE
     Dosage: 300 MG, QD
     Route: 048
     Dates: start: 20250524
  95. WELLBUTRIN XL [Concomitant]
     Active Substance: BUPROPION HYDROCHLORIDE
     Dosage: 300 MG, QD
     Route: 048
  96. WELLBUTRIN XL [Concomitant]
     Active Substance: BUPROPION HYDROCHLORIDE
     Indication: Product used for unknown indication
     Route: 048
     Dates: start: 20190627
  97. ZOCOR [Concomitant]
     Active Substance: SIMVASTATIN
     Indication: Product used for unknown indication
     Route: 048
     Dates: start: 20190627
  98. ZOCOR [Concomitant]
     Active Substance: SIMVASTATIN
     Route: 048
     Dates: start: 20241218

REACTIONS (61)
  - Dyspnoea [Unknown]
  - Fatigue [Not Recovered/Not Resolved]
  - Asthenia [Not Recovered/Not Resolved]
  - Pneumonia bacterial [Unknown]
  - Mycobacterium abscessus infection [Unknown]
  - Condition aggravated [Unknown]
  - Pericardial effusion [Unknown]
  - Liver injury [Unknown]
  - Chronic respiratory failure [Unknown]
  - Myocardial infarction [Unknown]
  - Pulmonary embolism [Unknown]
  - Bacteraemia [Unknown]
  - Sepsis [Unknown]
  - Pneumonia fungal [Unknown]
  - Hyperlipidaemia [Unknown]
  - Obstructive airways disorder [Unknown]
  - Anaemia [Unknown]
  - Hyponatraemia [Unknown]
  - Liver function test increased [Recovering/Resolving]
  - Gait disturbance [Unknown]
  - Dysstasia [Unknown]
  - Dyspnoea [Unknown]
  - Atelectasis [Unknown]
  - Pulmonary mass [Unknown]
  - Decreased appetite [Unknown]
  - Malaise [Unknown]
  - Drug intolerance [Unknown]
  - Influenza [Unknown]
  - Electrocardiogram abnormal [Unknown]
  - Weight decreased [Unknown]
  - Productive cough [Unknown]
  - Contusion [Unknown]
  - Chronic obstructive pulmonary disease [Unknown]
  - Electrolyte imbalance [Unknown]
  - Blood sodium decreased [Unknown]
  - Creatinine renal clearance decreased [Unknown]
  - Alanine aminotransferase increased [Unknown]
  - Blood alkaline phosphatase increased [Unknown]
  - Protein total decreased [Unknown]
  - Blood albumin decreased [Unknown]
  - Blood urea increased [Unknown]
  - Blood glucose increased [Unknown]
  - Aspartate aminotransferase increased [Unknown]
  - Blood potassium decreased [Unknown]
  - Haemoglobin decreased [Unknown]
  - Red blood cell count decreased [Unknown]
  - Granulocyte percentage decreased [Unknown]
  - Body temperature abnormal [Unknown]
  - Blood pressure abnormal [Unknown]
  - Haematocrit decreased [Unknown]
  - International normalised ratio increased [Unknown]
  - Prothrombin time prolonged [Unknown]
  - Mean cell haemoglobin decreased [Unknown]
  - Mean cell volume decreased [Unknown]
  - Blood iron decreased [Unknown]
  - Iron binding capacity total decreased [Unknown]
  - Neutrophil count increased [Unknown]
  - Dry skin [Unknown]
  - Cough [Unknown]
  - Nausea [Unknown]
  - Product substitution issue [Unknown]

NARRATIVE: CASE EVENT DATE: 20250523
